FAERS Safety Report 11110770 (Version 1)
Quarter: 2015Q2

REPORT INFORMATION
  Report Type: Spontaneous
  Country: ES (occurrence: ES)
  Receive Date: 20150513
  Receipt Date: 20150513
  Transmission Date: 20150821
  Serious: Yes (Other)
  Sender: FDA-Public Use
  Company Number: ES-TEVA-561174ISR

PATIENT
  Sex: Female

DRUGS (1)
  1. OXALIPLATINO TEVA 5 MG [Suspect]
     Active Substance: OXALIPLATIN
     Dosage: OXALIPLATINO TEVA 5 MG
     Dates: start: 20150415

REACTIONS (3)
  - Burning sensation [Unknown]
  - Pain [Unknown]
  - Phlebitis [Unknown]

NARRATIVE: CASE EVENT DATE: 201504
